FAERS Safety Report 5710937-9 (Version None)
Quarter: 2008Q2

REPORT INFORMATION
  Report Type: 
  Country: None (occurrence: None)
  Receive Date: 20080421
  Receipt Date: 20080411
  Transmission Date: 20081010
  Serious: Yes (Death)
  Sender: FDA-Public Use
  Company Number: PHBS2008US04058

PATIENT
  Age: 62 Year
  Sex: Female

DRUGS (3)
  1. PREDNISONE [Concomitant]
     Indication: RENAL TRANSPLANT
  2. LENALIDOMIDE [Concomitant]
     Indication: LYMPHOPROLIFERATIVE DISORDER
  3. CYCLOSPORINE [Suspect]
     Indication: RENAL TRANSPLANT

REACTIONS (10)
  - DISEASE PROGRESSION [None]
  - DRUG INTOLERANCE [None]
  - FATIGUE [None]
  - HEPATOSPLENOMEGALY [None]
  - LEUKAEMIC INFILTRATION HEPATIC [None]
  - LYMPHOCYTOSIS [None]
  - LYMPHOPROLIFERATIVE DISORDER [None]
  - MUSCLE SPASMS [None]
  - NIGHT SWEATS [None]
  - REFUSAL OF TREATMENT BY PATIENT [None]
